FAERS Safety Report 16564057 (Version 2)
Quarter: 2020Q1

REPORT INFORMATION
  Report Type: Report from Study
  Country: BR (occurrence: BR)
  Receive Date: 20190712
  Receipt Date: 20200120
  Transmission Date: 20200409
  Serious: Yes (Death, Other)
  Sender: FDA-Public Use
  Company Number: BR-UCBSA-2019028681

PATIENT
  Age: 42 Year
  Sex: Male
  Weight: 56 kg

DRUGS (1)
  1. CERTOLIZUMAB PEGOL RA [Suspect]
     Active Substance: CERTOLIZUMAB PEGOL
     Indication: RHEUMATOID ARTHRITIS
     Dosage: 200 MILLIGRAM, EV 15 DAYS
     Route: 058
     Dates: start: 2018, end: 20190429

REACTIONS (3)
  - Tuberculosis [Recovering/Resolving]
  - Nodule [Unknown]
  - Death [Fatal]

NARRATIVE: CASE EVENT DATE: 20190701
